FAERS Safety Report 8003929-0 (Version None)
Quarter: 2011Q4

REPORT INFORMATION
  Report Type: 
  Country: None (occurrence: None)
  Receive Date: 20111222
  Receipt Date: 20111214
  Transmission Date: 20120403
  Serious: Yes (Hospitalization, Other)
  Sender: FDA-Public Use
  Company Number: US-BAYER-2011-040442

PATIENT
  Age: 24 Year
  Sex: Female
  Weight: 63 kg

DRUGS (7)
  1. AMOXICILLIN [Concomitant]
     Dosage: UNK UNK, PRN
     Route: 048
     Dates: start: 19840101
  2. HYDROCODONE BITARTRATE AND ACETAMINOPHEN [Concomitant]
     Dosage: UNK
     Route: 048
     Dates: start: 20080422
  3. IBUPROFEN [Concomitant]
     Dosage: UNK UNK, PRN
     Route: 048
     Dates: start: 19840101
  4. OXYCODONE HCL AND ACETAMINOPHEN [Concomitant]
     Dosage: UNK
     Route: 048
     Dates: start: 20080425
  5. YAZ [Suspect]
     Dosage: UNK
     Route: 048
     Dates: start: 20050101, end: 20100201
  6. DROSPIRENONE AND ETHINYL ESTRADIOL [Suspect]
     Dosage: UNK
     Route: 048
     Dates: start: 20050101, end: 20100201
  7. YASMIN [Suspect]
     Dosage: UNK
     Dates: start: 20050101, end: 20100201

REACTIONS (10)
  - CHOLECYSTITIS CHRONIC [None]
  - INJURY [None]
  - PANCREATITIS [None]
  - MYOCARDIAL INFARCTION [None]
  - GALLBLADDER DISORDER [None]
  - DEEP VEIN THROMBOSIS [None]
  - PAIN [None]
  - PULMONARY EMBOLISM [None]
  - CEREBROVASCULAR ACCIDENT [None]
  - MENTAL DISORDER [None]
